FAERS Safety Report 21324613 (Version 2)
Quarter: 2022Q4

REPORT INFORMATION
  Report Type: Spontaneous
  Country: None (occurrence: US)
  Receive Date: 20220912
  Receipt Date: 20221017
  Transmission Date: 20230113
  Serious: Yes (Other)
  Sender: FDA-Public Use
  Company Number: US-Imprimis NJOF-2132765

PATIENT
  Age: 71 Year
  Sex: Female

DRUGS (1)
  1. BROMFENAC\MOXIFLOXACIN\PREDNISOLONE ACETATE [Suspect]
     Active Substance: BROMFENAC\MOXIFLOXACIN\PREDNISOLONE ACETATE
     Route: 047

REACTIONS (6)
  - Tremor [Unknown]
  - Dysacusis [None]
  - Headache [None]
  - Dry mouth [None]
  - Eye irritation [None]
  - General symptom [None]
